FAERS Safety Report 7490301-5 (Version None)
Quarter: 2011Q2

REPORT INFORMATION
  Report Type: 
  Country: None (occurrence: None)
  Receive Date: 20110519
  Receipt Date: 20101122
  Transmission Date: 20111010
  Serious: No
  Sender: FDA-Public Use
  Company Number: US-BRISTOL-MYERS SQUIBB COMPANY-15400138

PATIENT
  Age: 26 Year
  Sex: Female

DRUGS (2)
  1. TENOFOVIR DISOPROXIL FUMARATE [Suspect]
  2. BARACLUDE [Suspect]

REACTIONS (1)
  - PREGNANCY [None]
